FAERS Safety Report 13332332 (Version 1)
Quarter: 2017Q1

REPORT INFORMATION
  Report Type: Report from Study
  Country: BR (occurrence: BR)
  Receive Date: 20170314
  Receipt Date: 20170314
  Transmission Date: 20170428
  Serious: Yes (Hospitalization)
  Sender: FDA-Public Use
  Company Number: PHHY2017BR038174

PATIENT
  Age: 55 Year
  Sex: Female
  Weight: 48 kg

DRUGS (2)
  1. ACLASTA [Suspect]
     Active Substance: ZOLEDRONIC ACID
     Indication: OSTEOPOROSIS
     Dosage: 5 MG, Q12MO
     Route: 042
     Dates: start: 201410
  2. ACLASTA [Suspect]
     Active Substance: ZOLEDRONIC ACID
     Dosage: 5 MG, Q12MO
     Route: 042
     Dates: start: 201510, end: 201510

REACTIONS (2)
  - Vitamin D decreased [Unknown]
  - Systemic lupus erythematosus [Recovering/Resolving]

NARRATIVE: CASE EVENT DATE: 201610
